FAERS Safety Report 4778438-2 (Version None)
Quarter: 2005Q3

REPORT INFORMATION
  Report Type: 
  Country: None (occurrence: None)
  Receive Date: 20050926
  Receipt Date: 20011201
  Transmission Date: 20060218
  Serious: Yes (Other)
  Sender: FDA-Public Use
  Company Number: ES-JNJFOC-20050901331

PATIENT
  Sex: Male
  Weight: 84 kg

DRUGS (2)
  1. RISPERIDONE [Suspect]
     Route: 048
     Dates: start: 20000528
  2. RISPERIDONE [Suspect]
     Indication: SCHIZOPHRENIA
     Route: 048
     Dates: start: 20000528

REACTIONS (3)
  - BLOOD GLUCOSE DECREASED [None]
  - HYPERCHOLESTEROLAEMIA [None]
  - LOW DENSITY LIPOPROTEIN INCREASED [None]
